FAERS Safety Report 6286889-2 (Version None)
Quarter: 2009Q3

REPORT INFORMATION
  Report Type: 
  Country: None (occurrence: None)
  Receive Date: 20090728
  Receipt Date: 20090722
  Transmission Date: 20100115
  Serious: No
  Sender: FDA-Public Use
  Company Number: US-MERCK-0902USA04358B1

PATIENT
  Sex: Male
  Weight: 3 kg

DRUGS (5)
  1. SINGULAIR [Suspect]
     Indication: ASTHMA
     Route: 064
     Dates: start: 20060101
  2. SINGULAIR [Suspect]
     Indication: RHINITIS ALLERGIC
     Route: 064
     Dates: start: 20060101
  3. PULMICORT-100 [Concomitant]
     Route: 064
  4. ALBUTEROL [Concomitant]
     Route: 064
  5. VITAMINS (UNSPECIFIED) [Concomitant]
     Route: 064

REACTIONS (1)
  - FOETAL HYPOKINESIA [None]
